FAERS Safety Report 21357428 (Version 2)
Quarter: 2022Q3

REPORT INFORMATION
  Report Type: Spontaneous
  Country: US (occurrence: US)
  Receive Date: 20220921
  Receipt Date: 20220927
  Transmission Date: 20221026
  Serious: No
  Sender: FDA-Public Use
  Company Number: US-ELI_LILLY_AND_COMPANY-US202209007623

PATIENT
  Age: 63 Year
  Sex: Female

DRUGS (5)
  1. TRULICITY [Suspect]
     Active Substance: DULAGLUTIDE
     Indication: Glucose tolerance impaired
     Dosage: 3 MG, UNKNOWN
     Route: 058
     Dates: start: 2022
  2. TRULICITY [Suspect]
     Active Substance: DULAGLUTIDE
     Indication: Glucose tolerance impaired
     Dosage: 3 MG, UNKNOWN
     Route: 058
     Dates: start: 2022
  3. TRULICITY [Suspect]
     Active Substance: DULAGLUTIDE
     Dosage: 3 MG, UNKNOWN
     Route: 058
     Dates: start: 2022
  4. TRULICITY [Suspect]
     Active Substance: DULAGLUTIDE
     Dosage: 3 MG, UNKNOWN
     Route: 058
     Dates: start: 2022
  5. METFORMIN [Suspect]
     Active Substance: METFORMIN HYDROCHLORIDE
     Indication: Glucose tolerance impaired
     Dosage: UNK UNK, BID
     Route: 065

REACTIONS (2)
  - Pollakiuria [Unknown]
  - Off label use [Unknown]

NARRATIVE: CASE EVENT DATE: 20220801
